FAERS Safety Report 14714781 (Version 1)
Quarter: 2018Q2

REPORT INFORMATION
  Report Type: Spontaneous
  Country: JP (occurrence: JP)
  Receive Date: 20180404
  Receipt Date: 20180404
  Transmission Date: 20180711
  Serious: Yes (Other)
  Sender: FDA-Public Use
  Company Number: JP-ALLERGAN-1816770US

PATIENT
  Age: 71 Year
  Sex: Female

DRUGS (1)
  1. BOTULINUM TOXIN TYPE A - BP [Suspect]
     Active Substance: BOTULINUM TOXIN TYPE A
     Indication: BLEPHAROSPASM
     Dosage: UNK, SINGLE
     Route: 030
     Dates: start: 20131116, end: 20131116

REACTIONS (3)
  - Exposure keratitis [Recovering/Resolving]
  - Sjogren^s syndrome [Unknown]
  - Dry eye [Unknown]
